FAERS Safety Report 25136895 (Version 1)
Quarter: 2025Q1

REPORT INFORMATION
  Report Type: Spontaneous
  Country: GB (occurrence: GB)
  Receive Date: 20250328
  Receipt Date: 20250328
  Transmission Date: 20250408
  Serious: Yes (Other)
  Sender: SANDOZ
  Company Number: GB-MHRA-TPP19469765C10096203YC1743004084917

PATIENT
  Age: 68 Year
  Sex: Female
  Weight: 90 kg

DRUGS (4)
  1. AMOXICILLIN\CLAVULANATE POTASSIUM [Suspect]
     Active Substance: AMOXICILLIN\CLAVULANATE POTASSIUM
     Indication: Product used for unknown indication
     Route: 065
     Dates: start: 20250324
  2. Hylo forte [Concomitant]
     Indication: Product used for unknown indication
     Route: 065
     Dates: start: 20190716
  3. LATANOPROST [Concomitant]
     Active Substance: LATANOPROST
     Indication: Product used for unknown indication
     Dosage: 1 DROP R EYE AT NIGHT
     Route: 065
     Dates: start: 20190709
  4. TIMOLOL [Concomitant]
     Active Substance: TIMOLOL
     Indication: Product used for unknown indication
     Dosage: ONE DROP ONCE DAILY R EYE
     Route: 065
     Dates: start: 20231106

REACTIONS (3)
  - Chest discomfort [Unknown]
  - Choking [Unknown]
  - Dyspnoea [Recovering/Resolving]

NARRATIVE: CASE EVENT DATE: 20250325
